FAERS Safety Report 6531233-6 (Version None)
Quarter: 2010Q1

REPORT INFORMATION
  Report Type: 
  Country: None (occurrence: None)
  Receive Date: 20100108
  Receipt Date: 20100106
  Transmission Date: 20100710
  Serious: Yes (Death)
  Sender: FDA-Public Use
  Company Number: PHHY2010BR00786

PATIENT
  Age: 79 Year
  Sex: Male

DRUGS (1)
  1. TEGRETOL [Suspect]
     Indication: CEREBROVASCULAR ACCIDENT
     Dosage: 400 MG, TID
     Route: 048
     Dates: start: 20080701

REACTIONS (1)
  - MYOCARDIAL INFARCTION [None]
